FAERS Safety Report 11551670 (Version 1)
Quarter: 2015Q3

REPORT INFORMATION
  Report Type: Spontaneous
  Country: US (occurrence: US)
  Receive Date: 20150903
  Receipt Date: 20150903
  Transmission Date: 20151125
  Serious: No
  Sender: FDA-Public Use
  Company Number: US-ELI_LILLY_AND_COMPANY-US200712001060

PATIENT
  Age: 62 Year
  Sex: Male

DRUGS (4)
  1. HUMALOG [Suspect]
     Active Substance: INSULIN LISPRO
     Dosage: UNK, AS NEEDED
  2. HUMALOG [Suspect]
     Active Substance: INSULIN LISPRO
  3. LANTUS [Concomitant]
     Active Substance: INSULIN GLARGINE
     Dosage: UNK, EACH MORNING
  4. METHIMAZOLE. [Concomitant]
     Active Substance: METHIMAZOLE

REACTIONS (6)
  - Nervousness [Unknown]
  - Nausea [Unknown]
  - Blood glucose decreased [Unknown]
  - Blood glucose increased [Unknown]
  - Expired product administered [Unknown]
  - Tremor [Unknown]

NARRATIVE: CASE EVENT DATE: 20071205
